FAERS Safety Report 15562611 (Version 1)
Quarter: 2018Q4

REPORT INFORMATION
  Report Type: Spontaneous
  Country: US (occurrence: ZA)
  Receive Date: 20181029
  Receipt Date: 20181029
  Transmission Date: 20190205
  Serious: Yes (Hospitalization)
  Sender: FDA-Public Use
  Company Number: ZA-STI PHARMA LLC-2058180

PATIENT
  Age: 31 Year
  Sex: Female

DRUGS (12)
  1. ETHIONAMIDE [Suspect]
     Active Substance: ETHIONAMIDE
     Dates: start: 20180411
  2. BEDAQUILINE [Suspect]
     Active Substance: BEDAQUILINE
     Dates: start: 20180705
  3. PYRIDOXINE HYDROCHLORIDE. [Concomitant]
     Active Substance: PYRIDOXINE HYDROCHLORIDE
  4. AMINOSALICYLIC ACID [Suspect]
     Active Substance: AMINOSALICYLIC ACID
     Dates: start: 20180705
  5. LEVOFLOXACIN. [Suspect]
     Active Substance: LEVOFLOXACIN
     Dates: start: 20180411
  6. OMEPRAZOLE. [Concomitant]
     Active Substance: OMEPRAZOLE
  7. DELAMINID [Suspect]
     Active Substance: DELAMANID
     Dates: start: 20180709
  8. METOCLOPRAMIDE HYDROCHLORIDE. [Concomitant]
     Active Substance: METOCLOPRAMIDE HYDROCHLORIDE
  9. LINEZOLID. [Suspect]
     Active Substance: LINEZOLID
     Dates: start: 20180705
  10. ETHAMBUTOL HYDROCHLORIDE. [Suspect]
     Active Substance: ETHAMBUTOL HYDROCHLORIDE
     Dates: start: 20180411
  11. PYRAZINAMIDE. [Suspect]
     Active Substance: PYRAZINAMIDE
     Dates: start: 20180411
  12. CLOFAZIMINE [Suspect]
     Active Substance: CLOFAZIMINE
     Dates: start: 20180411

REACTIONS (1)
  - Anxiety [Recovering/Resolving]

NARRATIVE: CASE EVENT DATE: 20180920
